FAERS Safety Report 11473929 (Version 1)
Quarter: 2015Q3

REPORT INFORMATION
  Report Type: Report from Study
  Country: FR (occurrence: FR)
  Receive Date: 20150908
  Receipt Date: 20150908
  Transmission Date: 20151125
  Serious: No
  Sender: FDA-Public Use
  Company Number: FR-JAZZ-2013-FR-005212

PATIENT
  Age: 23 Year
  Sex: Male
  Weight: 99 kg

DRUGS (8)
  1. MODIODAL [Concomitant]
     Active Substance: MODAFINIL
     Indication: PRODUCT USED FOR UNKNOWN INDICATION
     Dosage: 100 MG, QID
     Route: 048
  2. XYREM [Suspect]
     Active Substance: SODIUM OXYBATE
     Dosage: 2.5 G, BID
     Route: 048
     Dates: start: 20140416
  3. XYREM [Suspect]
     Active Substance: SODIUM OXYBATE
     Dosage: 1.5 G, BID
     Route: 048
     Dates: start: 20140112, end: 2014
  4. XYREM [Suspect]
     Active Substance: SODIUM OXYBATE
     Dosage: 3 G, BID
     Route: 048
     Dates: start: 20140130
  5. XYREM [Suspect]
     Active Substance: SODIUM OXYBATE
     Dosage: 0.75 G, BID
     Route: 048
     Dates: start: 20131220, end: 20140111
  6. XYREM [Suspect]
     Active Substance: SODIUM OXYBATE
     Dosage: 2.75 G, BID
     Route: 048
     Dates: start: 2014
  7. XYREM [Suspect]
     Active Substance: SODIUM OXYBATE
     Dosage: 3 G OR 2.75 G TWICE NIGHTLY
     Route: 048
     Dates: start: 20140212, end: 20140314
  8. XYREM [Suspect]
     Active Substance: SODIUM OXYBATE
     Indication: NARCOLEPSY
     Dosage: 1.5 G, BID
     Route: 048
     Dates: start: 20131219, end: 20131219

REACTIONS (18)
  - Confusional state [Unknown]
  - Nausea [Unknown]
  - Vision blurred [Unknown]
  - Feeling drunk [Unknown]
  - Headache [Recovered/Resolved]
  - Visual impairment [Unknown]
  - Sleep disorder [Unknown]
  - Myoclonus [Not Recovered/Not Resolved]
  - Tremor [Unknown]
  - Fatigue [Unknown]
  - Migraine [Unknown]
  - Dysgeusia [Unknown]
  - Abdominal pain [Unknown]
  - Tooth infection [Unknown]
  - Urinary incontinence [Unknown]
  - Decreased appetite [Unknown]
  - Hypersomnia [Unknown]
  - Insomnia [Recovered/Resolved]

NARRATIVE: CASE EVENT DATE: 20140111
